FAERS Safety Report 21515611 (Version 1)
Quarter: 2022Q4

REPORT INFORMATION
  Report Type: Spontaneous
  Country: TR (occurrence: TR)
  Receive Date: 20221027
  Receipt Date: 20221027
  Transmission Date: 20230113
  Serious: Yes (Hospitalization)
  Sender: FDA-Public Use
  Company Number: TR-GLAXOSMITHKLINE-TR2022GSK153753

PATIENT

DRUGS (19)
  1. LAMOTRIGINE [Suspect]
     Active Substance: LAMOTRIGINE
     Indication: Pain
     Dosage: UNK
  2. BUPROPION [Suspect]
     Active Substance: BUPROPION
     Indication: Pain
     Dosage: UNK
  3. PAROXETINE [Suspect]
     Active Substance: PAROXETINE
     Indication: Pain
     Dosage: UNK
  4. AMITRIPTYLINE [Suspect]
     Active Substance: AMITRIPTYLINE
     Indication: Pain
     Dosage: UNK
  5. PREGABALIN [Suspect]
     Active Substance: PREGABALIN
     Indication: Pain
     Dosage: UNK
  6. GABAPENTIN [Suspect]
     Active Substance: GABAPENTIN
     Indication: Pain
     Dosage: UNK
  7. MEMANTINE [Suspect]
     Active Substance: MEMANTINE
     Indication: Pain
     Dosage: UNK
  8. SERTRALINE [Suspect]
     Active Substance: SERTRALINE HYDROCHLORIDE
     Indication: Pain
     Dosage: UNK
  9. DULOXETINE [Suspect]
     Active Substance: DULOXETINE
     Indication: Pain
     Dosage: UNK
  10. IMIPRAMINE [Suspect]
     Active Substance: IMIPRAMINE
     Indication: Pain
     Dosage: UNK
  11. VENLAFAXINE [Suspect]
     Active Substance: VENLAFAXINE HYDROCHLORIDE
     Indication: Pain
     Dosage: UNK
  12. ARIPIPRAZOLE [Suspect]
     Active Substance: ARIPIPRAZOLE
     Indication: Pain
     Dosage: UNK
  13. QUETIAPINE [Suspect]
     Active Substance: QUETIAPINE
     Indication: Pain
     Dosage: UNK
  14. LORAZEPAM [Suspect]
     Active Substance: LORAZEPAM
     Indication: Pain
     Dosage: UNK
  15. OLANZAPINE [Suspect]
     Active Substance: OLANZAPINE
     Indication: Pain
     Dosage: UNK
  16. MIRTAZAPINE [Suspect]
     Active Substance: MIRTAZAPINE
     Indication: Pain
     Dosage: UNK
  17. RISPERIDONE [Suspect]
     Active Substance: RISPERIDONE
     Indication: Pain
     Dosage: UNK
  18. HALOPERIDOL [Suspect]
     Active Substance: HALOPERIDOL
     Indication: Pain
     Dosage: UNK
  19. FLUOXETINE [Concomitant]
     Active Substance: FLUOXETINE HYDROCHLORIDE
     Indication: Anxiety disorder
     Dosage: UNK

REACTIONS (4)
  - Self-medication [Unknown]
  - Intentional product misuse to child [Unknown]
  - Pain [Recovering/Resolving]
  - Somatic symptom disorder [Unknown]
